FAERS Safety Report 6245314-8 (Version None)
Quarter: 2009Q2

REPORT INFORMATION
  Report Type: 
  Country: None (occurrence: None)
  Receive Date: 20090623
  Receipt Date: 20090623
  Transmission Date: 20091009
  Serious: Yes (Other)
  Sender: FDA-Public Use
  Company Number: None

PATIENT
  Age: 30 Year
  Sex: Female
  Weight: 61.2356 kg

DRUGS (1)
  1. FLUCONAZOLE [Suspect]
     Indication: FUNGAL INFECTION
     Dosage: ONE TABLET ONCE PO
     Route: 048
     Dates: start: 20090617, end: 20090617

REACTIONS (6)
  - DRUG INEFFECTIVE [None]
  - RASH GENERALISED [None]
  - RASH PRURITIC [None]
  - SCRATCH [None]
  - SLEEP DISORDER [None]
  - URTICARIA [None]
